FAERS Safety Report 9597072 (Version 1)
Quarter: 2013Q4

REPORT INFORMATION
  Report Type: Spontaneous
  Country: BR (occurrence: BR)
  Receive Date: 20131004
  Receipt Date: 20131004
  Transmission Date: 20140711
  Serious: Yes (Other)
  Sender: FDA-Public Use
  Company Number: BR-ABBVIE-13P-020-1154690-00

PATIENT
  Age: 57 Year
  Sex: Female
  Weight: 84 kg

DRUGS (12)
  1. SYNTHROID [Suspect]
     Indication: THYROID DISORDER
     Dosage: 2 TABLETS IN THE MORNING IN FASTED
     Route: 048
     Dates: start: 201305
  2. CITALOPRAM [Concomitant]
     Indication: DEPRESSION
     Route: 048
     Dates: start: 2001
  3. OMEPRAZOLE [Concomitant]
     Indication: GASTROOESOPHAGEAL REFLUX DISEASE
     Route: 048
     Dates: start: 2011
  4. LIBIAM [Concomitant]
     Indication: MENOPAUSE
     Route: 048
     Dates: start: 2010
  5. SIMVASTATIN [Concomitant]
     Indication: BLOOD CHOLESTEROL
     Dosage: PER 10 OR 11 YEARS
     Route: 048
     Dates: start: 2011
  6. SIMVASTATIN [Concomitant]
     Route: 048
     Dates: start: 2011
  7. LAMOTRIGINE [Concomitant]
     Indication: DEPRESSION
     Route: 048
     Dates: start: 2009
  8. ZOLPIDEM TARTRATE [Concomitant]
     Indication: INSOMNIA
     Route: 048
     Dates: start: 2010
  9. QUETIAPINE FUMARATE [Concomitant]
     Indication: INSOMNIA
     Route: 048
     Dates: start: 2009
  10. QUETIAPINE FUMARATE [Concomitant]
     Indication: ANXIOLYTIC THERAPY
  11. QUETIAPINE FUMARATE [Concomitant]
     Indication: DEPRESSION
  12. LOSARTAN POTASSIUM [Concomitant]
     Indication: HYPERTENSION
     Route: 048
     Dates: start: 2009

REACTIONS (7)
  - Bipolar disorder [Unknown]
  - Local swelling [Not Recovered/Not Resolved]
  - Burning sensation [Not Recovered/Not Resolved]
  - Paraesthesia [Not Recovered/Not Resolved]
  - Cough [Not Recovered/Not Resolved]
  - Unevaluable event [Not Recovered/Not Resolved]
  - Insomnia [Unknown]
